FAERS Safety Report 18194458 (Version 1)
Quarter: 2020Q3

REPORT INFORMATION
  Report Type: Spontaneous
  Country: ES (occurrence: ES)
  Receive Date: 20200826
  Receipt Date: 20200826
  Transmission Date: 20201103
  Serious: Yes (Life-Threatening, Hospitalization, Other)
  Sender: FDA-Public Use
  Company Number: ES-HETERO-HET2020ES00896

PATIENT
  Age: 66 Year
  Sex: Male

DRUGS (4)
  1. LOPINAVIR + RITONAVIR [Suspect]
     Active Substance: LOPINAVIR\RITONAVIR
     Indication: COVID-19
     Dosage: UNK, BID (400 MG, 100 MG)
     Route: 065
  2. DULOXETINE. [Suspect]
     Active Substance: DULOXETINE
     Indication: BIPOLAR DISORDER
     Dosage: 120 MG, QD
     Route: 065
  3. HYDROXYCHLOROQUINE [Concomitant]
     Active Substance: HYDROXYCHLOROQUINE
     Indication: COVID-19
     Dosage: 200 MG, BID
     Route: 065
  4. LITHIUM. [Suspect]
     Active Substance: LITHIUM
     Indication: BIPOLAR DISORDER
     Dosage: 800 MG, QD
     Route: 065

REACTIONS (10)
  - Urinary retention [Recovered/Resolved]
  - Hypertension [Recovered/Resolved]
  - Hyperhidrosis [Recovered/Resolved]
  - Myoclonus [Recovered/Resolved]
  - Encephalopathy [Recovered/Resolved]
  - Hyperreflexia [Recovered/Resolved]
  - Blood creatinine increased [Recovered/Resolved]
  - Serotonin syndrome [Recovered/Resolved]
  - Clonus [Recovered/Resolved]
  - Tachycardia [Recovered/Resolved]
